FAERS Safety Report 9235598 (Version 3)
Quarter: 2013Q2

REPORT INFORMATION
  Report Type: Spontaneous
  Country: US (occurrence: US)
  Receive Date: 20130417
  Receipt Date: 20130610
  Transmission Date: 20140414
  Serious: Yes (Hospitalization)
  Sender: FDA-Public Use
  Company Number: US-JNJFOC-20130404667

PATIENT
  Age: 55 Year
  Sex: Female
  Weight: 63.5 kg

DRUGS (3)
  1. REMICADE [Suspect]
     Indication: RHEUMATOID ARTHRITIS
     Dosage: THE PATIENT HAD BEEN ON INFLIXIMAB SINCE THREE YEARS (50 YEARS OF AGE) DOSE 6 MG/KG
     Route: 042
     Dates: start: 20081222, end: 20130207
  2. METHOTREXATE [Suspect]
     Indication: RHEUMATOID ARTHRITIS
     Dosage: THE PATIENT^S THERAPY DURATION WAS MORE THAN 5 YEARS
     Route: 048
     Dates: start: 20070801, end: 20130207
  3. FOLIC ACID [Concomitant]
     Indication: RHEUMATOID ARTHRITIS
     Dosage: DOSE: 1 (UNITS ILLEGIBLE)
     Route: 065
     Dates: start: 20070801, end: 20130207

REACTIONS (1)
  - Papillary thyroid cancer [Recovered/Resolved]
